FAERS Safety Report 10448670 (Version 1)
Quarter: 2014Q3

REPORT INFORMATION
  Report Type: Spontaneous
  Country: JP (occurrence: JP)
  Receive Date: 20140912
  Receipt Date: 20140912
  Transmission Date: 20150326
  Serious: Yes (Death)
  Sender: FDA-Public Use
  Company Number: JP-ROCHE-1460237

PATIENT
  Age: 96 Year
  Sex: Female

DRUGS (1)
  1. MIRCERA [Suspect]
     Active Substance: PEGZEREPOETIN ALFA
     Indication: NEPHROGENIC ANAEMIA
     Dosage: MOST RECENT DOSE- 27/AUG/2014
     Route: 058
     Dates: start: 20140827

REACTIONS (2)
  - Cholangitis [Fatal]
  - Cholecystitis [Fatal]

NARRATIVE: CASE EVENT DATE: 20140828
